FAERS Safety Report 18040078 (Version 2)
Quarter: 2020Q4

REPORT INFORMATION
  Report Type: Spontaneous
  Country: MX (occurrence: MX)
  Receive Date: 20200717
  Receipt Date: 20201201
  Transmission Date: 20210113
  Serious: Yes (Death)
  Sender: FDA-Public Use
  Company Number: MX-ALLERGAN-2026565US

PATIENT

DRUGS (1)
  1. CEFTAROLINE FOSAMIL - BP [Suspect]
     Active Substance: CEFTAROLINE FOSAMIL
     Indication: BACTERIAL INFECTION
     Route: 065

REACTIONS (3)
  - Death [Fatal]
  - Off label use [Unknown]
  - Product use in unapproved indication [Unknown]
